FAERS Safety Report 20025096 (Version 1)
Quarter: 2021Q4

REPORT INFORMATION
  Report Type: Report from Study
  Country: CA (occurrence: CA)
  Receive Date: 20211102
  Receipt Date: 20211102
  Transmission Date: 20220303
  Serious: Yes (Hospitalization, Other)
  Sender: FDA-Public Use
  Company Number: CA-JAZZ-2021-CA-013856

PATIENT
  Sex: Male

DRUGS (18)
  1. XYREM [Suspect]
     Active Substance: SODIUM OXYBATE
     Indication: Cataplexy
     Dosage: 2.25 GRAM, BID
     Route: 048
     Dates: start: 20190901, end: 20191008
  2. XYREM [Suspect]
     Active Substance: SODIUM OXYBATE
     Indication: Narcolepsy
     Dosage: 3 GRAM, BID
     Route: 048
     Dates: start: 20191009, end: 202006
  3. XYREM [Suspect]
     Active Substance: SODIUM OXYBATE
     Dosage: 3.75 GRAM, BID
     Route: 048
     Dates: start: 202006, end: 20200623
  4. XYREM [Suspect]
     Active Substance: SODIUM OXYBATE
     Dosage: 3 GRAM, BID
     Route: 048
     Dates: start: 20200703, end: 202009
  5. XYREM [Suspect]
     Active Substance: SODIUM OXYBATE
     Dosage: 2.25 GRAM, BID
     Route: 048
     Dates: start: 202009, end: 2020
  6. XYREM [Suspect]
     Active Substance: SODIUM OXYBATE
     Dosage: 3 GRAM, BID
     Route: 048
     Dates: start: 2020, end: 20210709
  7. XYREM [Suspect]
     Active Substance: SODIUM OXYBATE
     Dosage: 4.5 GRAM, BID
     Route: 048
     Dates: start: 20210710
  8. CHOLECALCIFEROL [Concomitant]
     Active Substance: CHOLECALCIFEROL
     Indication: Product used for unknown indication
     Dosage: 10000UI
     Dates: start: 20190117
  9. BUPROPION SANDOZ [BUPROPION HYDROBROMIDE] [Concomitant]
     Indication: Product used for unknown indication
     Dosage: 100MG +100MG
     Dates: start: 20190117
  10. SANDOZ VENLAFAXINE [Concomitant]
     Indication: Product used for unknown indication
     Dosage: 37.5 MG
     Dates: start: 20190117
  11. ANAFRANIL [Concomitant]
     Active Substance: CLOMIPRAMINE HYDROCHLORIDE
     Indication: Product used for unknown indication
     Dosage: 25 MG
     Dates: start: 20190117
  12. ACT AMPHETAMINE XR [Concomitant]
     Indication: Product used for unknown indication
     Dosage: 30MG
     Dates: start: 20190117
  13. ACT AMPHETAMINE XR [Concomitant]
     Dosage: 10MG + 10MG
     Dates: start: 20190117
  14. QUINAGOLIDE HYDROCHLORIDE [Concomitant]
     Active Substance: QUINAGOLIDE HYDROCHLORIDE
     Indication: Product used for unknown indication
     Dosage: 0.075 MG
     Dates: start: 20190515
  15. CORTEF [Concomitant]
     Active Substance: HYDROCORTISONE
     Indication: Product used for unknown indication
     Dosage: 10 MG
     Dates: start: 20190516
  16. PROMETRIUM [Concomitant]
     Active Substance: PROGESTERONE
     Indication: Product used for unknown indication
     Dosage: 100 MG
     Dates: start: 20190516
  17. SYNTHROID [Concomitant]
     Active Substance: LEVOTHYROXINE SODIUM
     Indication: Product used for unknown indication
     Dosage: 0.175 MG
     Dates: start: 20190516
  18. ESTRADIOL [Concomitant]
     Active Substance: ESTRADIOL
     Indication: Product used for unknown indication
     Dosage: 2 MG
     Dates: start: 20190516

REACTIONS (1)
  - Loss of consciousness [Unknown]
